FAERS Safety Report 7957685-2 (Version None)
Quarter: 2011Q4

REPORT INFORMATION
  Report Type: 
  Country: None (occurrence: None)
  Receive Date: 20111205
  Receipt Date: 20111125
  Transmission Date: 20120403
  Serious: Yes (Hospitalization)
  Sender: FDA-Public Use
  Company Number: US-BAYER-201024170NA

PATIENT
  Age: 21 Year
  Sex: Female
  Weight: 86.168 kg

DRUGS (5)
  1. YAZ [Suspect]
     Indication: PREMENSTRUAL SYNDROME
  2. XANAX [Concomitant]
     Dosage: 0.125 MG, UNK
  3. YAZ [Suspect]
     Indication: ORAL CONTRACEPTION
     Dosage: UNK UNK, QD
     Route: 048
     Dates: start: 20080128, end: 20080610
  4. ATIVAN [Concomitant]
     Indication: ANXIETY DISORDER
  5. VITAMINS NOS [Concomitant]
     Dosage: UNK UNK, QD

REACTIONS (9)
  - HYPERCOAGULATION [None]
  - ANXIETY [None]
  - PULMONARY EMBOLISM [None]
  - ANGINA PECTORIS [None]
  - DEPRESSION [None]
  - CHEST PAIN [None]
  - PULMONARY THROMBOSIS [None]
  - POST-TRAUMATIC STRESS DISORDER [None]
  - DYSPNOEA [None]
